FAERS Safety Report 7302194-7 (Version None)
Quarter: 2011Q1

REPORT INFORMATION
  Report Type: 
  Country: None (occurrence: None)
  Receive Date: 20110218
  Receipt Date: 20110208
  Transmission Date: 20110831
  Serious: Yes (Hospitalization)
  Sender: FDA-Public Use
  Company Number: PHHO2010GB19321

PATIENT
  Sex: Male
  Weight: 75 kg

DRUGS (13)
  1. CIPROFLOXACIN [Concomitant]
     Indication: PROPHYLAXIS
     Dosage: UNK
  2. BENDROFLUMETHIAZIDE [Concomitant]
  3. CODEINE [Concomitant]
  4. PRAVASTATIN SODIUM [Concomitant]
     Dosage: UNK
     Dates: start: 20101124
  5. ASPIRIN [Concomitant]
  6. AFINITOR [Suspect]
     Indication: HEAD AND NECK CANCER
     Dosage: 10 MG, QW
     Route: 048
     Dates: start: 20101207, end: 20110120
  7. METOCLOPRAMIDE HCL [Concomitant]
     Dosage: UNK
     Dates: start: 20101207, end: 20101207
  8. CODEINE SULFATE [Concomitant]
     Dosage: UNK
  9. TINZAPARIN [Concomitant]
  10. DOCETAXEL [Suspect]
     Indication: HEAD AND NECK CANCER
     Dosage: 75 MG/M2, EVERY 3 WEEKS
     Route: 048
     Dates: start: 20101207, end: 20110120
  11. PARACETAMOL [Concomitant]
     Indication: PAIN
  12. SIMVASTATIN [Concomitant]
     Dosage: UNK
     Dates: start: 20101109, end: 20101123
  13. DEXAMETHASONE [Concomitant]
     Dosage: UNK
     Dates: start: 20101206, end: 20101208

REACTIONS (15)
  - CHILLS [None]
  - HYPERHIDROSIS [None]
  - OROPHARYNGEAL PAIN [None]
  - NEUTROPENIA [None]
  - SPUTUM INCREASED [None]
  - FEBRILE NEUTROPENIA [None]
  - PAIN [None]
  - PYREXIA [None]
  - DYSPNOEA [None]
  - SEPSIS [None]
  - TACHYCARDIA [None]
  - FEELING HOT [None]
  - HYPOTENSION [None]
  - FEELING COLD [None]
  - NEUTROPENIC SEPSIS [None]
